FAERS Safety Report 4438135-X (Version None)
Quarter: 2004Q3

REPORT INFORMATION
  Report Type: 
  Country: None (occurrence: None)
  Receive Date: 20040831
  Receipt Date: 20040527
  Transmission Date: 20050211
  Serious: No
  Sender: FDA-Public Use
  Company Number: US-GLAXOSMITHKLINE-A0512418A

PATIENT
  Sex: Female

DRUGS (7)
  1. WELLBUTRIN XL [Suspect]
     Indication: DEPRESSION
     Dosage: 150MG PER DAY
     Route: 048
  2. DHEA [Concomitant]
     Indication: HORMONE REPLACEMENT THERAPY
  3. MULTIVITAMIN [Concomitant]
  4. ANTIOXIDANT [Concomitant]
  5. CALCIUM [Concomitant]
  6. GARLIC CAPSULES [Concomitant]
  7. GINGER ROOT [Concomitant]

REACTIONS (3)
  - DIZZINESS [None]
  - HYPERTENSION [None]
  - PALPITATIONS [None]
